FAERS Safety Report 4922915-8 (Version None)
Quarter: 2006Q1

REPORT INFORMATION
  Report Type: 
  Country: None (occurrence: None)
  Receive Date: 20060224
  Receipt Date: 20051026
  Transmission Date: 20060701
  Serious: Yes (Hospitalization, Other)
  Sender: FDA-Public Use
  Company Number: GB-MERCK-0510GBR00179

PATIENT
  Age: 76 Year
  Sex: Female
  Weight: 45 kg

DRUGS (50)
  1. VIOXX [Suspect]
     Indication: OSTEOARTHRITIS
     Route: 048
     Dates: start: 20010101
  2. VIOXX [Suspect]
     Route: 048
     Dates: start: 20010101
  3. VIOXX [Suspect]
     Route: 048
     Dates: start: 20020101, end: 20030501
  4. VIOXX [Suspect]
     Route: 048
     Dates: start: 20030527, end: 20040801
  5. VIOXX [Suspect]
     Route: 048
     Dates: start: 20040301
  6. ASPIRIN [Concomitant]
     Route: 065
  7. LOPERAMIDE HYDROCHLORIDE [Concomitant]
     Route: 065
  8. RAMIPRIL [Concomitant]
     Route: 065
  9. CODEINE PHOSPHATE [Concomitant]
     Route: 065
  10. NITROGLYCERIN [Concomitant]
     Route: 065
  11. FUROSEMIDE [Concomitant]
     Route: 065
  12. MORPHINE SULFATE [Concomitant]
     Route: 065
  13. LEVOTHYROXINE SODIUM [Concomitant]
     Route: 065
  14. TEMAZEPAM [Concomitant]
     Route: 065
  15. SIMVASTATIN [Concomitant]
     Route: 065
  16. GABAPENTIN [Concomitant]
     Route: 065
  17. ISOSORBIDE MONONITRATE [Concomitant]
     Indication: ASTHMA
     Route: 065
  18. IPRATROPIUM BROMIDE [Concomitant]
     Indication: ASTHMA
     Route: 065
  19. BUDESONIDE [Concomitant]
     Route: 065
  20. POLYVINYL ALCOHOL [Concomitant]
     Route: 065
  21. PIROXICAM [Concomitant]
     Route: 065
     Dates: start: 20030201, end: 20030501
  22. TRAMADOL HYDROCHLORIDE [Concomitant]
     Route: 065
  23. TRAMADOL HYDROCHLORIDE [Concomitant]
     Route: 065
  24. ALBUTEROL SULFATE [Concomitant]
     Route: 065
  25. BUDESONIDE [Concomitant]
     Route: 065
  26. FLUTICASONE PROPIONATE [Concomitant]
     Route: 065
  27. LACTULOSE [Concomitant]
     Route: 065
  28. DICYCLOMINE HYDROCHLORIDE [Concomitant]
     Route: 065
  29. DEXTROSE AND ELECTROLYTES (UNSPECIFIED) [Concomitant]
     Route: 065
  30. ACETAMINOPHEN [Concomitant]
     Route: 065
  31. AMILORIDE HYDROCHLORIDE AND FUROSEMIDE [Concomitant]
     Route: 065
  32. CEFADROXIL [Concomitant]
     Route: 065
  33. FENTANYL [Concomitant]
     Route: 065
  34. CLOTRIMAZOLE [Concomitant]
     Route: 065
  35. CLOTRIMAZOLE [Concomitant]
     Route: 065
  36. TRIMETHOPRIM [Concomitant]
     Route: 065
  37. CLOBETASOL PROPIONATE [Concomitant]
     Route: 065
  38. PROCHLORPERAZINE MALEATE [Concomitant]
     Route: 048
  39. DEXTROSE AND POTASSIUM CHLORIDE AND SODIUM CHLORIDE AND SODIUM CITRATE [Concomitant]
     Route: 065
  40. DIBUCAINE HYDROCHLORIDE AND HYDROCORTISONE [Concomitant]
     Route: 065
  41. MICONAZOLE [Concomitant]
     Route: 065
  42. CYANOCOBALAMIN [Concomitant]
     Route: 065
  43. FLUTICASONE PROPIONATE [Concomitant]
     Route: 065
  44. BUPRENORPHINE [Concomitant]
     Route: 065
  45. BECLOMETHASONE DIPROPIONATE [Concomitant]
     Route: 065
  46. BUDESONIDE [Concomitant]
     Route: 065
  47. WARFARIN SODIUM [Concomitant]
     Route: 065
  48. THIAMINE [Concomitant]
     Route: 065
  49. RAMIPRIL [Concomitant]
     Route: 065
  50. OXYGEN [Concomitant]
     Route: 065

REACTIONS (22)
  - ACUTE MYOCARDIAL INFARCTION [None]
  - ANGINA PECTORIS [None]
  - ANOREXIA [None]
  - BLOOD CREATININE INCREASED [None]
  - CANDIDIASIS [None]
  - CARDIAC FAILURE [None]
  - CARDIAC FIBRILLATION [None]
  - CHRONIC OBSTRUCTIVE PULMONARY DISEASE [None]
  - CYSTITIS [None]
  - DIARRHOEA [None]
  - DYSPNOEA [None]
  - HAEMORRHOIDS [None]
  - JOINT SWELLING [None]
  - LOWER RESPIRATORY TRACT INFECTION [None]
  - MYOCARDIAL INFARCTION [None]
  - NAUSEA [None]
  - ORAL CANDIDIASIS [None]
  - OSTEOARTHRITIS [None]
  - PULMONARY EMBOLISM [None]
  - RENAL FAILURE CHRONIC [None]
  - VAGINAL CANDIDIASIS [None]
  - VOMITING [None]
